FAERS Safety Report 6886356-9 (Version None)
Quarter: 2010Q3

REPORT INFORMATION
  Report Type: 
  Country: None (occurrence: None)
  Receive Date: 20100729
  Receipt Date: 20090206
  Transmission Date: 20110219
  Serious: Yes (Other)
  Sender: FDA-Public Use
  Company Number: US-PFIZER INC-2009159618

PATIENT
  Sex: Female
  Weight: 73.016 kg

DRUGS (1)
  1. CELEBREX [Suspect]
     Indication: ARTHRITIS
     Dosage: 200 MG, 1X/DAY
     Dates: start: 20090120, end: 20090121

REACTIONS (3)
  - CHEST DISCOMFORT [None]
  - FATIGUE [None]
  - INSOMNIA [None]
